FAERS Safety Report 17436685 (Version 1)
Quarter: 2020Q1

REPORT INFORMATION
  Report Type: Spontaneous
  Country: US (occurrence: US)
  Receive Date: 20200219
  Receipt Date: 20200219
  Transmission Date: 20200409
  Serious: No
  Sender: FDA-Public Use
  Company Number: US-SA-2020SA041603

PATIENT
  Age: 63 Year
  Sex: Male

DRUGS (1)
  1. XYZAL [Suspect]
     Active Substance: LEVOCETIRIZINE DIHYDROCHLORIDE
     Indication: HYPERSENSITIVITY
     Dosage: 1 DF, QD
     Route: 065

REACTIONS (7)
  - Hypersensitivity [Unknown]
  - Product size issue [Unknown]
  - Product use complaint [Unknown]
  - Rhinorrhoea [Unknown]
  - Drug ineffective [Unknown]
  - Sneezing [Unknown]
  - Lacrimation increased [Unknown]
